FAERS Safety Report 5948021-1 (Version None)
Quarter: 2008Q4

REPORT INFORMATION
  Report Type: 
  Country: None (occurrence: None)
  Receive Date: 20081111
  Receipt Date: 20081104
  Transmission Date: 20090506
  Serious: Yes (Death, Hospitalization)
  Sender: FDA-Public Use
  Company Number: TW-WYE-H06552008

PATIENT
  Sex: Male
  Weight: 48 kg

DRUGS (2)
  1. TORISEL [Suspect]
     Indication: RENAL CELL CARCINOMA
     Route: 042
     Dates: start: 20080718
  2. BEVACIZUMAB, TEST ARTICLE IN TEMSIROLIMUS STUDY [Suspect]
     Indication: RENAL CELL CARCINOMA
     Route: 042
     Dates: start: 20080718

REACTIONS (2)
  - HYPOALBUMINAEMIA [None]
  - RESPIRATORY FAILURE [None]
